FAERS Safety Report 8481107-9 (Version None)
Quarter: 2012Q3

REPORT INFORMATION
  Report Type: 
  Country: None (occurrence: None)
  Receive Date: 20120702
  Receipt Date: 20120618
  Transmission Date: 20120928
  Serious: No
  Sender: FDA-Public Use
  Company Number: US-JNJFOC-20120610087

PATIENT
  Sex: Female
  Weight: 70.31 kg

DRUGS (7)
  1. ESTROGEN [Concomitant]
     Indication: HYSTERECTOMY
     Route: 062
  2. VITAMIN B COMPLEX CAP [Concomitant]
     Indication: MEDICAL DIET
     Route: 048
  3. CALCIUM [Concomitant]
     Indication: MEDICAL DIET
     Route: 048
  4. LORAZEPAM [Concomitant]
     Indication: SLEEP DISORDER
     Dosage: 1 MG NIGHTLY
     Route: 048
  5. FENTANYL-100 [Suspect]
     Indication: METASTATIC MALIGNANT MELANOMA
     Route: 062
     Dates: start: 20120615, end: 20120617
  6. THYROID TAB [Concomitant]
     Indication: HYPOTHYROIDISM
     Route: 048
  7. FENTANYL-100 [Suspect]
     Indication: BACK PAIN
     Route: 062
     Dates: start: 20120615, end: 20120617

REACTIONS (4)
  - INCORRECT DOSE ADMINISTERED [None]
  - WITHDRAWAL SYNDROME [None]
  - VOMITING [None]
  - DRUG INEFFECTIVE [None]
